FAERS Safety Report 24968712 (Version 1)
Quarter: 2025Q1

REPORT INFORMATION
  Report Type: Report from Study
  Country: US (occurrence: US)
  Receive Date: 20250214
  Receipt Date: 20250214
  Transmission Date: 20250408
  Serious: No
  Sender: AMNEAL
  Company Number: US-AMNEAL PHARMACEUTICALS-2024-AMRX-01466

PATIENT
  Sex: Male

DRUGS (3)
  1. CARBIDOPA\LEVODOPA [Suspect]
     Active Substance: CARBIDOPA\LEVODOPA
     Indication: Parkinson^s disease
     Dosage: 2 (48.75-195 MG) CAPSULES, 5X/DAY
     Route: 048
  2. CARBIDOPA\LEVODOPA [Suspect]
     Active Substance: CARBIDOPA\LEVODOPA
     Dosage: 48.75/195 MG, UNK DOSE, 4X/DAY
     Route: 048
  3. CARBIDOPA\LEVODOPA [Suspect]
     Active Substance: CARBIDOPA\LEVODOPA
     Dosage: 2 (48.75-195 MG) CAPSULES, 5X/DAY
     Route: 048

REACTIONS (6)
  - Depression [Unknown]
  - Diplopia [Unknown]
  - Altered visual depth perception [Unknown]
  - Localised infection [Unknown]
  - Fall [Unknown]
  - Anxiety [Unknown]
